FAERS Safety Report 6695405-2 (Version None)
Quarter: 2010Q2

REPORT INFORMATION
  Report Type: 
  Country: None (occurrence: None)
  Receive Date: 20100422
  Receipt Date: 20100422
  Transmission Date: 20101027
  Serious: Yes (Hospitalization)
  Sender: FDA-Public Use
  Company Number: None

PATIENT
  Sex: Male
  Weight: 106.5953 kg

DRUGS (1)
  1. BYETTA [Suspect]
     Indication: DIABETES MELLITUS
     Dosage: 10 MCG BID SQ
     Route: 058
     Dates: start: 20071201, end: 20090301

REACTIONS (4)
  - ANAEMIA [None]
  - PANCREATITIS HAEMORRHAGIC [None]
  - PULMONARY EMBOLISM [None]
  - WEIGHT DECREASED [None]
